FAERS Safety Report 9099167 (Version 1)
Quarter: 2013Q1

REPORT INFORMATION
  Report Type: Spontaneous
  Country: US (occurrence: US)
  Receive Date: 20130213
  Receipt Date: 20130213
  Transmission Date: 20140127
  Serious: Yes (Hospitalization)
  Sender: FDA-Public Use
  Company Number: US-BAYER-2013-017170

PATIENT
  Age: 16 Year
  Sex: Female
  Weight: 56.69 kg

DRUGS (4)
  1. YAZ [Suspect]
  2. ORAL CONTRACEPTIVE NOS [Concomitant]
  3. MOTRIN [Concomitant]
  4. NSAID^S [Concomitant]

REACTIONS (3)
  - Hepatic vein thrombosis [Recovered/Resolved]
  - Vena cava thrombosis [None]
  - Deep vein thrombosis [None]
